FAERS Safety Report 25642426 (Version 3)
Quarter: 2025Q4

REPORT INFORMATION
  Report Type: Spontaneous
  Country: US (occurrence: US)
  Receive Date: 20250805
  Receipt Date: 20251016
  Transmission Date: 20260118
  Serious: Yes (Other)
  Sender: NOVO NORDISK
  Company Number: US-NOVOPROD-1489791

PATIENT
  Age: 63 Year
  Sex: Female
  Weight: 78.005 kg

DRUGS (3)
  1. WEGOVY [Suspect]
     Active Substance: SEMAGLUTIDE
     Indication: Glucose tolerance impaired
     Dosage: 0.25 MG
     Route: 058
     Dates: start: 20250603, end: 20250625
  2. WEGOVY [Suspect]
     Active Substance: SEMAGLUTIDE
     Indication: Coronary artery disease
  3. WEGOVY [Suspect]
     Active Substance: SEMAGLUTIDE
     Indication: Weight control

REACTIONS (4)
  - Gastroenteritis [Recovered/Resolved]
  - Starvation [Unknown]
  - Nephrolithiasis [Recovered/Resolved]
  - Vein collapse [Unknown]

NARRATIVE: CASE EVENT DATE: 20250618
